FAERS Safety Report 5401016-9 (Version None)
Quarter: 2007Q3

REPORT INFORMATION
  Report Type: 
  Country: None (occurrence: None)
  Receive Date: 20070730
  Receipt Date: 20070720
  Transmission Date: 20080115
  Serious: Yes (Hospitalization)
  Sender: FDA-Public Use
  Company Number: GB-ABBOTT-04P-167-0249087-00

PATIENT
  Sex: Female
  Weight: 50 kg

DRUGS (6)
  1. HUMIRA [Suspect]
     Indication: RHEUMATOID ARTHRITIS
     Route: 058
     Dates: start: 20030710, end: 20031214
  2. PREDNISOLONE [Concomitant]
  3. ACETAMINOPHEN AND CODEINE PHOSPHATE [Concomitant]
  4. DIHYDROCODEINE BITARTRATE INJ [Concomitant]
  5. PARACETAMOL [Concomitant]
  6. ALENDRONATE SODIUM [Concomitant]

REACTIONS (1)
  - HAEMATOMA [None]
